FAERS Safety Report 6593700-9 (Version None)
Quarter: 2010Q1

REPORT INFORMATION
  Report Type: 
  Country: None (occurrence: None)
  Receive Date: 20100222
  Receipt Date: 20091201
  Transmission Date: 20100710
  Serious: No
  Sender: FDA-Public Use
  Company Number: US-BRISTOL-MYERS SQUIBB COMPANY-14878128

PATIENT
  Age: 69 Year
  Sex: Female
  Weight: 43 kg

DRUGS (6)
  1. ORENCIA [Suspect]
     Indication: RHEUMATOID ARTHRITIS
     Dates: start: 20090609
  2. SULINDAC [Concomitant]
  3. PREDNISONE [Concomitant]
  4. FOSAMAX [Concomitant]
  5. ATORVASTATIN CALCIUM [Concomitant]
  6. LEVOTHYROXINE SODIUM [Concomitant]

REACTIONS (1)
  - HEPATIC ENZYME INCREASED [None]
